FAERS Safety Report 10869400 (Version 1)
Quarter: 2015Q1

REPORT INFORMATION
  Report Type: Spontaneous
  Country: FR (occurrence: FR)
  Receive Date: 20150226
  Receipt Date: 20150226
  Transmission Date: 20150721
  Serious: Yes (Hospitalization)
  Sender: FDA-Public Use
  Company Number: FR-ASTRAZENECA-2015SE16978

PATIENT
  Age: 80 Year
  Sex: Male

DRUGS (11)
  1. LORAZEPAM. [Concomitant]
     Active Substance: LORAZEPAM
  2. EFFEXOR [Concomitant]
     Active Substance: VENLAFAXINE HYDROCHLORIDE
  3. ONBREZ [Concomitant]
     Active Substance: INDACATEROL
     Dosage: ONE DF EVERY MORNING AND EVERY EVENING
  4. ZYPREXA [Concomitant]
     Active Substance: OLANZAPINE
  5. SPAGULAX [Concomitant]
     Active Substance: PLANTAGO OVATA SEED
  6. PRAVASTATIN [Concomitant]
     Active Substance: PRAVASTATIN\PRAVASTATIN SODIUM
  7. MOVICOL [Concomitant]
     Active Substance: POLYETHYLENE GLYCOL 3350\POTASSIUM CHLORIDE\SODIUM BICARBONATE\SODIUM CHLORIDE
  8. PULMICORT TURBUHALER [Suspect]
     Active Substance: BUDESONIDE
     Route: 055
     Dates: start: 20150109
  9. XATRAL [Suspect]
     Active Substance: ALFUZOSIN
     Route: 065
     Dates: start: 20150109
  10. TERCIAN [Concomitant]
     Active Substance: CYAMEMAZINE
     Dosage: 1.5 DF EVERY MORNING AND 1 DF AT MIDDAY AND EVERY EVENING
  11. LOVENOX [Concomitant]
     Active Substance: ENOXAPARIN SODIUM
     Dosage: 0.4 SINCE HOSPITALIZATION

REACTIONS (1)
  - Thrombocytopenia [Unknown]

NARRATIVE: CASE EVENT DATE: 20150122
